FAERS Safety Report 6317607-7 (Version None)
Quarter: 2009Q3

REPORT INFORMATION
  Report Type: 
  Country: None (occurrence: None)
  Receive Date: 20090821
  Receipt Date: 20090817
  Transmission Date: 20100115
  Serious: Yes (Hospitalization)
  Sender: FDA-Public Use
  Company Number: FR-BRISTOL-MYERS SQUIBB COMPANY-14744692

PATIENT
  Age: 87 Year
  Sex: Female

DRUGS (14)
  1. APROVEL TABS 75 MG [Suspect]
     Dosage: TABLET ONE TABLET IN THE MORNING
     Route: 048
     Dates: end: 20090628
  2. ALDACTONE [Suspect]
     Dosage: 1TAB ONE TABLET IN THE MORNING
     Dates: end: 20090628
  3. NEXIUM [Suspect]
     Dosage: ONE TABLET ONCE DAILY
     Route: 048
     Dates: end: 20090629
  4. LYRICA [Suspect]
     Dosage: 1 CAPSULE ONE TABLET IN THE MORNING AND ONE IN THE EVENING
     Route: 048
     Dates: end: 20090628
  5. ANAFRANIL [Suspect]
     Dosage: TABLETONE TABLET IN THE EVENING
     Route: 048
     Dates: end: 20090628
  6. ZOLOFT [Suspect]
     Dosage: CAPSULE 1TAB IN MORNING
     Route: 048
     Dates: end: 20090628
  7. CYMBALTA [Suspect]
     Dosage: ONE CAPSULE ONE TABLET IN THE MORNING
     Route: 048
     Dates: end: 20090628
  8. ZOLPIDEM [Concomitant]
     Dosage: ONE TABLET IN THE EVENING
  9. FLECAINIDE ACETATE [Concomitant]
     Dosage: 50 MG SR ONE TABLET IN THE MORNING
  10. ALPRAZOLAM [Concomitant]
     Dosage: ONE TABLET AT MID-DAY
  11. CIFLOX [Concomitant]
     Dosage: 1 DF=1TABS ONE TABLET IN THE MORNING AND ONE IN THE EVENING
  12. DEBRIDAT [Concomitant]
  13. MACROGOL 3350 [Concomitant]
  14. URIDOZ [Concomitant]
     Indication: URINARY TRACT INFECTION

REACTIONS (3)
  - DEHYDRATION [None]
  - HYPONATRAEMIA [None]
  - HYPOTENSION [None]
